FAERS Safety Report 7329881-9 (Version None)
Quarter: 2011Q1

REPORT INFORMATION
  Report Type: 
  Country: None (occurrence: None)
  Receive Date: 20110303
  Receipt Date: 20110218
  Transmission Date: 20110831
  Serious: Yes (Other)
  Sender: FDA-Public Use
  Company Number: IT-MYLANLABS-2011S1003436

PATIENT
  Age: 63 Year
  Sex: Female

DRUGS (2)
  1. CARBOPLATIN [Concomitant]
     Indication: OVARIAN CANCER
  2. PACLITAXEL [Suspect]
     Indication: OVARIAN CANCER
     Route: 042
     Dates: start: 20110209, end: 20110209

REACTIONS (1)
  - LARYNGOSPASM [None]
